FAERS Safety Report 12127949 (Version 2)
Quarter: 2016Q1

REPORT INFORMATION
  Report Type: Spontaneous
  Country: ZW (occurrence: ZW)
  Receive Date: 20160229
  Receipt Date: 20160303
  Transmission Date: 20160526
  Serious: Yes (Death)
  Sender: FDA-Public Use
  Company Number: ZW-ABBVIE-16P-190-1570561-00

PATIENT
  Age: 0 Day

DRUGS (1)
  1. SURVANTA [Suspect]
     Active Substance: BERACTANT
     Indication: PRODUCT USED FOR UNKNOWN INDICATION
     Route: 065

REACTIONS (1)
  - Death [Fatal]

NARRATIVE: CASE EVENT DATE: 20160224
